FAERS Safety Report 10758262 (Version 1)
Quarter: 2015Q1

REPORT INFORMATION
  Report Type: Spontaneous
  Country: US (occurrence: US)
  Receive Date: 20150203
  Receipt Date: 20150203
  Transmission Date: 20150721
  Serious: Yes (Other)
  Sender: FDA-Public Use
  Company Number: US-GILEAD-2015-0134861

PATIENT
  Sex: Female

DRUGS (1)
  1. STRIBILD [Suspect]
     Active Substance: COBICISTAT\ELVITEGRAVIR\EMTRICITABINE\TENOFOVIR DISOPROXIL FUMARATE
     Indication: PRODUCT USED FOR UNKNOWN INDICATION
     Dosage: UNK
     Route: 065
     Dates: start: 2013

REACTIONS (5)
  - Tinnitus [Not Recovered/Not Resolved]
  - Tinnitus [Not Recovered/Not Resolved]
  - Upper respiratory tract infection [Unknown]
  - Diarrhoea [Unknown]
  - Feeding disorder [Unknown]

NARRATIVE: CASE EVENT DATE: 2013
